FAERS Safety Report 19716486 (Version 2)
Quarter: 2022Q2

REPORT INFORMATION
  Report Type: Spontaneous
  Country: US (occurrence: US)
  Receive Date: 20210818
  Receipt Date: 20220609
  Transmission Date: 20220721
  Serious: No
  Sender: FDA-Public Use
  Company Number: US-PFIZER INC-202101022772

PATIENT
  Age: 57 Year
  Sex: Male

DRUGS (1)
  1. IBRANCE [Suspect]
     Active Substance: PALBOCICLIB
     Dosage: 125 MG
     Dates: start: 20210310

REACTIONS (6)
  - Product dose omission issue [Unknown]
  - Memory impairment [Unknown]
  - Alopecia [Unknown]
  - Musculoskeletal stiffness [Unknown]
  - Skin disorder [Unknown]
  - Peripheral swelling [Unknown]
